FAERS Safety Report 24756288 (Version 1)
Quarter: 2024Q4

REPORT INFORMATION
  Report Type: Other
  Country: CN (occurrence: CN)
  Receive Date: 20241220
  Receipt Date: 20241220
  Transmission Date: 20250115
  Serious: Yes (Other)
  Sender: Evive Biotechnology
  Company Number: CN-EVIVE BIOTECHNOLOGY SINGAPORE PTE. LTD.-EVI-CN-2024-000054

PATIENT
  Age: 61 Year
  Sex: Female
  Weight: 86.3 kg

DRUGS (2)
  1. RYZNEUTA [Suspect]
     Active Substance: EFBEMALENOGRASTIM ALFA-VUXW
     Indication: Neutropenia
     Dosage: 20 MILLIGRAM, QD
     Route: 058
     Dates: start: 20241108, end: 20241108
  2. RYZNEUTA [Suspect]
     Active Substance: EFBEMALENOGRASTIM ALFA-VUXW
     Dosage: 20 MILLIGRAM, QD
     Route: 058
     Dates: start: 20241204, end: 20241204

REACTIONS (6)
  - Amaurosis fugax [Recovered/Resolved]
  - Hyperhidrosis [Recovered/Resolved]
  - Temperature intolerance [Recovered/Resolved]
  - Asthenia [Recovered/Resolved]
  - Dizziness [Recovered/Resolved]
  - Nausea [Recovered/Resolved]

NARRATIVE: CASE EVENT DATE: 20241204
